FAERS Safety Report 24969316 (Version 2)
Quarter: 2025Q1

REPORT INFORMATION
  Report Type: Report from Study
  Country: CA (occurrence: CA)
  Receive Date: 20250214
  Receipt Date: 20250227
  Transmission Date: 20250408
  Serious: No
  Sender: JOHNSON AND JOHNSON
  Company Number: CA-JNJFOC-20250156546

PATIENT
  Age: 58 Year
  Sex: Female

DRUGS (2)
  1. REMICADE [Suspect]
     Active Substance: INFLIXIMAB
     Indication: Rheumatoid arthritis
     Route: 041
     Dates: start: 20210218
  2. REMICADE [Suspect]
     Active Substance: INFLIXIMAB
     Dosage: EXP:  AL-2027
     Route: 041
     Dates: start: 20210218

REACTIONS (3)
  - Abdominal pain lower [Not Recovered/Not Resolved]
  - Cell marker increased [Not Recovered/Not Resolved]
  - Musculoskeletal stiffness [Not Recovered/Not Resolved]
